FAERS Safety Report 9844790 (Version 1)
Quarter: 2014Q1

REPORT INFORMATION
  Report Type: Spontaneous
  Country: PT (occurrence: None)
  Receive Date: 20140122
  Receipt Date: 20140122
  Transmission Date: 20141002
  Serious: Yes (Other)
  Sender: FDA-Public Use
  Company Number: 2013P1022331

PATIENT
  Age: 52 Year
  Sex: 0

DRUGS (1)
  1. LAMOTRIGINE [Suspect]

REACTIONS (2)
  - Chest pain [None]
  - Electrocardiogram abnormal [None]
